FAERS Safety Report 11079706 (Version 3)
Quarter: 2015Q2

REPORT INFORMATION
  Report Type: Spontaneous
  Country: US (occurrence: US)
  Receive Date: 20150430
  Receipt Date: 20150624
  Transmission Date: 20150821
  Serious: Yes (Hospitalization, Disabling, Other)
  Sender: FDA-Public Use
  Company Number: US-009507513-1203USA01850

PATIENT
  Sex: Female
  Weight: 63.95 kg

DRUGS (2)
  1. FOSAMAX [Suspect]
     Active Substance: ALENDRONATE SODIUM
     Indication: OSTEOPENIA
     Dosage: 70 MG, UNK
     Route: 048
     Dates: start: 20020110, end: 20080409
  2. ALENDRONATE SODIUM. [Suspect]
     Active Substance: ALENDRONATE SODIUM
     Indication: OSTEOPENIA
     Dosage: 70 MG, UNK
     Route: 048
     Dates: start: 200805, end: 20100223

REACTIONS (16)
  - Osteonecrosis of jaw [Unknown]
  - Foot fracture [Recovered/Resolved]
  - Back pain [Unknown]
  - Nephrolithiasis [Unknown]
  - Stress fracture [Not Recovered/Not Resolved]
  - Low turnover osteopathy [Not Recovered/Not Resolved]
  - Osteoporosis [Not Recovered/Not Resolved]
  - Femur fracture [Unknown]
  - Spinal osteoarthritis [Unknown]
  - Hypertension [Unknown]
  - Hypothyroidism [Unknown]
  - Drug ineffective [Unknown]
  - Nephrolithiasis [Unknown]
  - Femur fracture [Not Recovered/Not Resolved]
  - Vitamin D deficiency [Unknown]
  - Headache [Unknown]

NARRATIVE: CASE EVENT DATE: 2007
